FAERS Safety Report 20153098 (Version 2)
Quarter: 2022Q1

REPORT INFORMATION
  Report Type: Spontaneous
  Country: JP (occurrence: JP)
  Receive Date: 20211206
  Receipt Date: 20220214
  Transmission Date: 20220423
  Serious: No
  Sender: FDA-Public Use
  Company Number: JP-DSPHARMA-2021DSP018833

PATIENT
  Age: 54 Year
  Sex: Female

DRUGS (3)
  1. LATUDA [Suspect]
     Active Substance: LURASIDONE HYDROCHLORIDE
     Indication: Bipolar disorder
     Dosage: 20 MG, QD
     Route: 048
     Dates: start: 20210730, end: 20210909
  2. DAYVIGO [Concomitant]
     Active Substance: LEMBOREXANT
     Indication: Bipolar disorder
     Dosage: 5 MG, QD
     Route: 048
     Dates: start: 20210730, end: 20210809
  3. DIAZEPAM [Concomitant]
     Active Substance: DIAZEPAM
     Indication: Bipolar disorder
     Dosage: 2 MG,3 TIMES / WEEK
     Route: 048
     Dates: start: 20210730, end: 20210809

REACTIONS (1)
  - Head discomfort [Recovered/Resolved]

NARRATIVE: CASE EVENT DATE: 20210815
